FAERS Safety Report 25653502 (Version 1)
Quarter: 2025Q3

REPORT INFORMATION
  Report Type: Spontaneous
  Country: US (occurrence: US)
  Receive Date: 20250807
  Receipt Date: 20250807
  Transmission Date: 20251021
  Serious: No
  Sender: GILEAD
  Company Number: US-GILEAD-2025-0723108

PATIENT
  Sex: Male

DRUGS (1)
  1. ODEFSEY [Suspect]
     Active Substance: EMTRICITABINE\RILPIVIRINE HYDROCHLORIDE\TENOFOVIR ALAFENAMIDE FUMARATE
     Indication: HIV infection
     Route: 065

REACTIONS (7)
  - Therapeutic product effect decreased [Unknown]
  - Diarrhoea [Unknown]
  - Weight increased [Unknown]
  - Middle insomnia [Unknown]
  - Abnormal dreams [Unknown]
  - Lethargy [Unknown]
  - Dehydration [Unknown]
